FAERS Safety Report 8301337-6 (Version None)
Quarter: 2012Q2

REPORT INFORMATION
  Report Type: 
  Country: None (occurrence: None)
  Receive Date: 20120420
  Receipt Date: 20120411
  Transmission Date: 20120825
  Serious: Yes (Other)
  Sender: FDA-Public Use
  Company Number: BR-EISAI INC-E3810-05451-SPO-BR

PATIENT
  Age: 48 Year
  Sex: Male

DRUGS (2)
  1. RABEPRAZOLE SODIUM [Suspect]
     Indication: DUODENAL ULCER
     Route: 048
     Dates: start: 20120301
  2. NORFLOXACIN [Concomitant]
     Indication: URINARY TRACT INFECTION
     Dates: start: 20120301

REACTIONS (5)
  - HEADACHE [None]
  - URINARY TRACT INFECTION [None]
  - SWELLING FACE [None]
  - BACK PAIN [None]
  - BRONCHITIS [None]
